FAERS Safety Report 7383810-0 (Version None)
Quarter: 2011Q1

REPORT INFORMATION
  Report Type: 
  Country: None (occurrence: None)
  Receive Date: 20110330
  Receipt Date: 20110329
  Transmission Date: 20110831
  Serious: Yes (Hospitalization)
  Sender: FDA-Public Use
  Company Number: KR-ROXANE LABORATORIES, INC.-2011-RO-00421RO

PATIENT
  Age: 9 Year
  Sex: Female

DRUGS (2)
  1. PREDNISOLONE [Concomitant]
     Indication: COLITIS ULCERATIVE
  2. AZATHIOPRINE [Suspect]
     Indication: COLITIS ULCERATIVE

REACTIONS (1)
  - ACUTE FEBRILE NEUTROPHILIC DERMATOSIS [None]
